FAERS Safety Report 4384677-5 (Version None)
Quarter: 2004Q2

REPORT INFORMATION
  Report Type: 
  Country: None (occurrence: None)
  Receive Date: 20040621
  Receipt Date: 20040608
  Transmission Date: 20050107
  Serious: Yes (Death)
  Sender: FDA-Public Use
  Company Number: 2004037960

PATIENT
  Sex: Male

DRUGS (1)
  1. SILDENAFIL (SILDENAFIL) [Suspect]
     Indication: ILL-DEFINED DISORDER
     Dosage: 50 MG ORAL
     Route: 048

REACTIONS (1)
  - DEATH [None]
